FAERS Safety Report 11592379 (Version 2)
Quarter: 2015Q4

REPORT INFORMATION
  Report Type: Spontaneous
  Country: US (occurrence: None)
  Receive Date: 20151001
  Receipt Date: 20151013
  Transmission Date: 20160304
  Serious: Yes (Life-Threatening, Hospitalization, Other)
  Sender: FDA-Public Use
  Company Number: 1713747-2015-999345

PATIENT
  Age: 65 Year
  Sex: Male
  Weight: 66 kg

DRUGS (7)
  1. NATURALYTE [Concomitant]
     Active Substance: ACETIC ACID\SODIUM ACETATE
  2. LIFE VEST [Concomitant]
  3. GRANUFLO [Concomitant]
     Active Substance: ACETIC ACID\SODIUM ACETATE
  4. COMBIAST EXTRACORPOREAL CIRCUIT [Concomitant]
  5. SALINE ORAL OTC [Suspect]
     Active Substance: SODIUM CHLORIDE
     Indication: CHRONIC KIDNEY DISEASE
     Dates: start: 20150912
  6. 2008T HD MACHINE [Concomitant]
  7. OPTIFLUX 160NRE DIALYZER [Concomitant]

REACTIONS (1)
  - Myocardial infarction [None]

NARRATIVE: CASE EVENT DATE: 20150912
